FAERS Safety Report 11129709 (Version 1)
Quarter: 2015Q2

REPORT INFORMATION
  Report Type: Spontaneous
  Country: US (occurrence: US)
  Receive Date: 20150521
  Receipt Date: 20150521
  Transmission Date: 20150821
  Serious: No
  Sender: FDA-Public Use
  Company Number: US-MALLINCKRODT-QSC-2014-0320

PATIENT
  Age: 47 Year
  Sex: Female
  Weight: 77.98 kg

DRUGS (2)
  1. H.P. ACTHAR [Suspect]
     Active Substance: CORTICOTROPIN
     Indication: FOCAL SEGMENTAL GLOMERULOSCLEROSIS
     Dosage: 80 UNITS, BIW
     Dates: start: 20140423
  2. CALCIUM [Suspect]
     Active Substance: CALCIUM

REACTIONS (2)
  - Weight decreased [Not Recovered/Not Resolved]
  - Blood cholesterol decreased [Unknown]

NARRATIVE: CASE EVENT DATE: 20140513
